FAERS Safety Report 8088119-8 (Version None)
Quarter: 2012Q1

REPORT INFORMATION
  Report Type: 
  Country: None (occurrence: None)
  Receive Date: 20120131
  Receipt Date: 20120123
  Transmission Date: 20120608
  Serious: Yes (Hospitalization)
  Sender: FDA-Public Use
  Company Number: FR-BIOGENIDEC-2012BI002800

PATIENT
  Age: 42 Year
  Sex: Female

DRUGS (6)
  1. TROSPIUM CHLORIDE [Concomitant]
     Indication: URINARY INCONTINENCE
     Route: 048
  2. VALPROIC ACID [Concomitant]
  3. EDUCTYL [Concomitant]
  4. CITALOPRAM HYDROBROMIDE [Concomitant]
  5. TYSABRI [Suspect]
     Indication: MULTIPLE SCLEROSIS
     Route: 042
     Dates: start: 20071025, end: 20080506
  6. SPAGULAX [Concomitant]

REACTIONS (1)
  - BLADDER DISORDER [None]
